FAERS Safety Report 11242142 (Version 4)
Quarter: 2015Q4

REPORT INFORMATION
  Report Type: Report from Study
  Country: IT (occurrence: IT)
  Receive Date: 20150706
  Receipt Date: 20151021
  Transmission Date: 20160304
  Serious: Yes (Hospitalization)
  Sender: FDA-Public Use
  Company Number: IT-CELGENE-ITA-2015066209

PATIENT
  Age: 59 Year
  Sex: Female
  Weight: 68.5 kg

DRUGS (4)
  1. CC-10004 [Suspect]
     Active Substance: APREMILAST
     Indication: PSORIATIC ARTHROPATHY
     Route: 048
     Dates: start: 2012, end: 20150610
  2. TRANQUIRIT [Concomitant]
     Active Substance: DIAZEPAM
     Indication: PRODUCT USED FOR UNKNOWN INDICATION
     Route: 065
     Dates: start: 20150120, end: 20150610
  3. SIMVASTATIN. [Concomitant]
     Active Substance: SIMVASTATIN
     Indication: HYPERLIPIDAEMIA
     Route: 048
     Dates: start: 20140107
  4. SIRDALUD [Concomitant]
     Active Substance: TIZANIDINE
     Indication: PSORIATIC ARTHROPATHY
     Route: 048
     Dates: start: 20141014, end: 20150610

REACTIONS (3)
  - Hypertension [Recovered/Resolved]
  - Transient ischaemic attack [Recovered/Resolved]
  - Pneumonia [Recovered/Resolved]

NARRATIVE: CASE EVENT DATE: 20150608
